FAERS Safety Report 8561792-3 (Version None)
Quarter: 2012Q3

REPORT INFORMATION
  Report Type: 
  Country: None (occurrence: None)
  Receive Date: 20120802
  Receipt Date: 20120112
  Transmission Date: 20120928
  Serious: Yes (Hospitalization)
  Sender: FDA-Public Use
  Company Number: US-ROCHE-1094695

PATIENT
  Sex: Female

DRUGS (4)
  1. XOLAIR [Suspect]
     Indication: ASTHMA
  2. FLUTICASONE PROPIONATE [Concomitant]
     Dosage: 500
  3. ALBUTEROL [Concomitant]
  4. SINGULAIR [Concomitant]

REACTIONS (3)
  - SINUSITIS [None]
  - CHRONIC SINUSITIS [None]
  - MALAISE [None]
